FAERS Safety Report 4834589-5 (Version None)
Quarter: 2005Q4

REPORT INFORMATION
  Report Type: 
  Country: None (occurrence: None)
  Receive Date: 20051122
  Receipt Date: 20051025
  Transmission Date: 20060501
  Serious: Yes (Death, Hospitalization)
  Sender: FDA-Public Use
  Company Number: PHRM2005FR02868

PATIENT
  Age: 63 Year
  Sex: Male
  Weight: 77 kg

DRUGS (4)
  1. EBIXA [Suspect]
     Dosage: 10 MG, BID
     Route: 048
  2. EXELON [Suspect]
     Indication: DEMENTIA ALZHEIMER'S TYPE
     Dosage: 6+4.5 MG, DAILY
     Route: 048
     Dates: end: 20050920
  3. EXELON [Suspect]
     Dosage: 2X6 MG, DAILY
     Route: 048
     Dates: start: 20050921, end: 20051004
  4. STABLON [Concomitant]
     Dosage: 12.5 MG, TID
     Route: 048

REACTIONS (6)
  - ABNORMAL BEHAVIOUR [None]
  - AGGRESSION [None]
  - ASPIRATION [None]
  - BRAIN STEM INFARCTION [None]
  - CHOKING [None]
  - NEGATIVISM [None]
